FAERS Safety Report 7868138-4 (Version None)
Quarter: 2011Q4

REPORT INFORMATION
  Report Type: 
  Country: None (occurrence: None)
  Receive Date: 20111028
  Receipt Date: 20111017
  Transmission Date: 20120403
  Serious: Yes (Life-Threatening)
  Sender: FDA-Public Use
  Company Number: JP-ELI_LILLY_AND_COMPANY-JP201110004646

PATIENT
  Age: 73 Year
  Sex: Female

DRUGS (14)
  1. MOTILIUM [Concomitant]
  2. URSO 250 [Concomitant]
  3. HOCHUUEKKITOU [Concomitant]
     Dosage: UNK
     Dates: start: 20110916
  4. PROMAC [Concomitant]
  5. ALDACTONE [Concomitant]
  6. CYMBALTA [Suspect]
     Indication: DEPRESSION
     Dosage: 20 MG, QD
     Route: 048
     Dates: start: 20110909, end: 20111002
  7. RIZE [Concomitant]
     Indication: DEPRESSION
     Dosage: UNK
     Route: 048
  8. LASIX [Concomitant]
  9. GASMOTIN [Concomitant]
  10. RABEPRAZOLE SODIUM [Concomitant]
  11. SENNARIDE [Concomitant]
  12. MAGMITT [Concomitant]
  13. MONILAC [Concomitant]
  14. NEUQUINON [Concomitant]

REACTIONS (4)
  - HYDRONEPHROSIS [None]
  - SEPSIS [None]
  - URINARY RETENTION [None]
  - SOMNOLENCE [None]
